FAERS Safety Report 9228337 (Version 2)
Quarter: 2013Q4

REPORT INFORMATION
  Report Type: Spontaneous
  Country: JP (occurrence: JP)
  Receive Date: 20130412
  Receipt Date: 20131017
  Transmission Date: 20140711
  Serious: Yes (Other)
  Sender: FDA-Public Use
  Company Number: JP-ROCHE-1212454

PATIENT
  Sex: 0

DRUGS (2)
  1. XELODA [Suspect]
     Indication: COLON CANCER
     Dosage: DOSAGE IS UNCERTAIN
     Route: 048
  2. ELPLAT [Suspect]
     Indication: COLON CANCER
     Dosage: DOSAGE IS UNCERTAIN
     Route: 041

REACTIONS (1)
  - Interstitial lung disease [Recovering/Resolving]
